FAERS Safety Report 8707187 (Version 3)
Quarter: 2013Q1

REPORT INFORMATION
  Report Type: Report from Study
  Country: US (occurrence: US)
  Receive Date: 20120803
  Receipt Date: 20130129
  Transmission Date: 20140127
  Serious: Yes (Hospitalization)
  Sender: FDA-Public Use
  Company Number: PHHO2012US010356

PATIENT
  Age: 55 Year
  Sex: Male
  Weight: 100.7 kg

DRUGS (35)
  1. 5-FLUOROURACIL [Suspect]
     Indication: SQUAMOUS CELL CARCINOMA
     Dosage: 1400 MG/24HRS CIV OVER 120 HOURS
     Route: 042
     Dates: start: 20120701, end: 20120706
  2. 5-FLUOROURACIL [Suspect]
     Dosage: 1400 MG/24HRS CIV OVER 120 HOURS
     Route: 042
     Dates: start: 20120715, end: 20120720
  3. 5-FLUOROURACIL [Suspect]
     Dosage: UNK
     Route: 042
     Dates: start: 20120729
  4. COMPARATOR PACLITAXEL [Suspect]
     Indication: SQUAMOUS CELL CARCINOMA
     Dosage: 228 MG QWK
     Route: 042
     Dates: start: 20120702
  5. COMPARATOR PACLITAXEL [Suspect]
     Dosage: 228 MG QWK
     Route: 042
     Dates: start: 20120715, end: 20120720
  6. COMPARATOR PACLITAXEL [Suspect]
     Dosage: UNK
     Route: 042
     Dates: start: 20120729
  7. BLINDED AFINITOR [Suspect]
     Indication: SQUAMOUS CELL CARCINOMA
     Dosage: NO TREATMENT
  8. BLINDED NO TREATMENT RECEIVED [Suspect]
     Indication: SQUAMOUS CELL CARCINOMA
     Dosage: NO TREATMENT
  9. BLINDED PLACEBO [Suspect]
     Indication: SQUAMOUS CELL CARCINOMA
     Dosage: NO TREATMENT
  10. HYDROXYUREA [Suspect]
     Indication: SQUAMOUS CELL CARCINOMA
     Dosage: 500 MG, BID
     Route: 048
     Dates: start: 20120701, end: 20120706
  11. HYDROXYUREA [Suspect]
     Dosage: 500 MG, BID
     Route: 048
     Dates: start: 20120715, end: 20120720
  12. HYDROXYUREA [Suspect]
     Dosage: UNK
     Route: 048
     Dates: start: 20120729
  13. AMOXICILLIN + CLAVULANIC ACID [Concomitant]
  14. BACITRACIN [Concomitant]
  15. FENTANYL [Concomitant]
  16. FILGRASTIM [Concomitant]
  17. MORPHINE [Concomitant]
  18. NEOSPORIN (NEOMYCIN SULFATE/POLYMYXIN B SULFATE) [Concomitant]
  19. MIRALAX [Concomitant]
  20. SENNA [Concomitant]
  21. ESCITALOPRAM [Concomitant]
  22. FAMOTIDINE [Concomitant]
  23. FLUCONAZOLE [Concomitant]
  24. EUCERIN [Concomitant]
  25. LIDOCAINE [Concomitant]
  26. AQUAPHOR [Concomitant]
  27. ONDANSETRON [Concomitant]
  28. PROCHLORPERAZINE [Concomitant]
  29. ROSUVASTATIN [Concomitant]
  30. GUAIFENESIN [Concomitant]
  31. NYSTATIN [Concomitant]
  32. DOCUSATE [Concomitant]
  33. ESOMEPRAZOLE [Concomitant]
  34. HYDROMORPHONE [Concomitant]
  35. ENOXAPARIN [Concomitant]
     Dosage: UNK

REACTIONS (2)
  - Dehydration [Unknown]
  - Nausea [Recovered/Resolved]
